FAERS Safety Report 21958587 (Version 1)
Quarter: 2023Q1

REPORT INFORMATION
  Report Type: Spontaneous
  Country: US (occurrence: US)
  Receive Date: 20230206
  Receipt Date: 20230206
  Transmission Date: 20230418
  Serious: No
  Sender: FDA-Public Use
  Company Number: US-SA-SAC20230202001492

PATIENT
  Sex: Female

DRUGS (28)
  1. DUPIXENT [Suspect]
     Active Substance: DUPILUMAB
     Indication: Dermatitis atopic
     Dosage: 300 MG, QOW
     Route: 058
     Dates: start: 20190208
  2. DUPIXENT [Suspect]
     Active Substance: DUPILUMAB
     Indication: Asthma
  3. ALBUTEROL SULFATE [Concomitant]
     Active Substance: ALBUTEROL SULFATE
  4. ACETAMINOPHEN\CODEINE PHOSPHATE [Concomitant]
     Active Substance: ACETAMINOPHEN\CODEINE PHOSPHATE
  5. LEVOTHYROXINE [Concomitant]
     Active Substance: LEVOTHYROXINE
  6. ATORVASTATIN [Concomitant]
     Active Substance: ATORVASTATIN
  7. CLOBETASOL [Concomitant]
     Active Substance: CLOBETASOL
  8. DULOXETINE [Concomitant]
     Active Substance: DULOXETINE
  9. FLUTICASONE [Concomitant]
     Active Substance: FLUTICASONE
  10. KENALOG [Concomitant]
     Active Substance: TRIAMCINOLONE ACETONIDE
  11. LISINOPRIL [Concomitant]
     Active Substance: LISINOPRIL
  12. METFORMIN [Concomitant]
     Active Substance: METFORMIN HYDROCHLORIDE
  13. OMEPRAZOLE [Concomitant]
     Active Substance: OMEPRAZOLE
  14. PREGABALIN [Concomitant]
     Active Substance: PREGABALIN
  15. RAMELTEON [Concomitant]
     Active Substance: RAMELTEON
  16. ROPINIROLE [Concomitant]
     Active Substance: ROPINIROLE
  17. ROZEREM [Concomitant]
     Active Substance: RAMELTEON
  18. TRAZODONE [Concomitant]
     Active Substance: TRAZODONE HYDROCHLORIDE
  19. TRULICITY [Concomitant]
     Active Substance: DULAGLUTIDE
  20. TYLENOL [Concomitant]
     Active Substance: ACETAMINOPHEN
  21. VALACYCLOVIR [Concomitant]
     Active Substance: VALACYCLOVIR HYDROCHLORIDE
  22. WIXELA INHUB [Concomitant]
     Active Substance: FLUTICASONE PROPIONATE\SALMETEROL XINAFOATE
  23. HYDROXYZINE HYDROCHLORIDE [Concomitant]
     Active Substance: HYDROXYZINE HYDROCHLORIDE
  24. METFORMIN [Concomitant]
     Active Substance: METFORMIN HYDROCHLORIDE
  25. ROPINIROLE [Concomitant]
     Active Substance: ROPINIROLE
  26. TRULICITY [Concomitant]
     Active Substance: DULAGLUTIDE
  27. ALBUTEROL [Concomitant]
     Active Substance: ALBUTEROL
  28. METHYLPREDNISOLONE [Concomitant]
     Active Substance: METHYLPREDNISOLONE

REACTIONS (3)
  - COVID-19 [Not Recovered/Not Resolved]
  - Illness [Not Recovered/Not Resolved]
  - Asthma [Not Recovered/Not Resolved]
